FAERS Safety Report 23039509 (Version 1)
Quarter: 2023Q4

REPORT INFORMATION
  Report Type: Spontaneous
  Country: CA (occurrence: CA)
  Receive Date: 20231006
  Receipt Date: 20231006
  Transmission Date: 20240110
  Serious: Yes (Disabling)
  Sender: FDA-Public Use
  Company Number: CA-PFIZER INC-202300312976

PATIENT
  Age: 51 Year
  Sex: Female

DRUGS (2)
  1. METHOTREXATE SODIUM [Suspect]
     Active Substance: METHOTREXATE SODIUM
     Indication: Sarcoidosis
     Dosage: UNK
     Route: 048
     Dates: start: 202105
  2. METHOTREXATE SODIUM [Suspect]
     Active Substance: METHOTREXATE SODIUM
     Dosage: 20 MG (INCREASED)
     Route: 048
     Dates: start: 202112

REACTIONS (4)
  - Dyspnoea [Unknown]
  - Nodule [Unknown]
  - Nervous system disorder [Unknown]
  - Off label use [Unknown]
